FAERS Safety Report 5935566-3 (Version None)
Quarter: 2008Q4

REPORT INFORMATION
  Report Type: 
  Country: None (occurrence: None)
  Receive Date: 20081030
  Receipt Date: 20081021
  Transmission Date: 20090506
  Serious: Yes (Hospitalization)
  Sender: FDA-Public Use
  Company Number: A0750973A

PATIENT
  Age: 56 Year
  Sex: Female
  Weight: 65 kg

DRUGS (2)
  1. LAPATINIB [Suspect]
     Indication: BREAST CANCER
     Dosage: 1500MG PER DAY
     Route: 048
     Dates: start: 20080917, end: 20080920
  2. PACLITAXEL [Suspect]
     Indication: BREAST CANCER
     Dosage: 80MGM2 WEEKLY
     Route: 042
     Dates: start: 20080917

REACTIONS (9)
  - ANAEMIA [None]
  - COUGH [None]
  - DIZZINESS [None]
  - HAEMOGLOBIN DECREASED [None]
  - LOSS OF CONSCIOUSNESS [None]
  - LUNG INFILTRATION [None]
  - PYREXIA [None]
  - RESPIRATORY FAILURE [None]
  - SYNCOPE [None]
